FAERS Safety Report 9476008 (Version 1)
Quarter: 2013Q3

REPORT INFORMATION
  Report Type: Spontaneous
  Country: US (occurrence: None)
  Receive Date: 20130822
  Receipt Date: 20130822
  Transmission Date: 20140515
  Serious: Yes (Other)
  Sender: FDA-Public Use
  Company Number: None

PATIENT
  Age: 77 Year
  Sex: Male
  Weight: 88.45 kg

DRUGS (2)
  1. BENZONATATE [Suspect]
     Indication: IDIOPATHIC PULMONARY FIBROSIS
     Route: 048
     Dates: start: 20130816, end: 20130818
  2. BENZONATATE [Suspect]
     Indication: COUGH
     Route: 048
     Dates: start: 20130816, end: 20130818

REACTIONS (3)
  - Dysphonia [None]
  - Dysphonia [None]
  - Dysphonia [None]
